FAERS Safety Report 7532165-7 (Version None)
Quarter: 2011Q2

REPORT INFORMATION
  Report Type: 
  Country: None (occurrence: None)
  Receive Date: 20110608
  Receipt Date: 20110603
  Transmission Date: 20111010
  Serious: Yes (Other)
  Sender: FDA-Public Use
  Company Number: US-PFIZER INC-2009191456

PATIENT
  Sex: Female

DRUGS (2)
  1. TIKOSYN [Suspect]
     Dosage: UNK UG, UNK
     Dates: start: 20081101
  2. TIKOSYN [Suspect]
     Dosage: 125 UG, UNK

REACTIONS (3)
  - URINARY TRACT INFECTION [None]
  - DRUG PRESCRIBING ERROR [None]
  - NASOPHARYNGITIS [None]
